FAERS Safety Report 6610588-8 (Version None)
Quarter: 2010Q1

REPORT INFORMATION
  Report Type: 
  Country: None (occurrence: None)
  Receive Date: 20100302
  Receipt Date: 20100218
  Transmission Date: 20100710
  Serious: Yes (Other)
  Sender: FDA-Public Use
  Company Number: US-PFIZER INC-2007077631

PATIENT
  Sex: Male
  Weight: 73.923 kg

DRUGS (8)
  1. VIAGRA [Suspect]
     Indication: ERECTILE DYSFUNCTION
     Dosage: 50 MG, AS NEEDED
     Route: 048
  2. VIAGRA [Suspect]
     Dosage: 50 MG, AS NEEDED
     Route: 048
  3. VITAMIN B-12 [Concomitant]
  4. LEVOXYL [Concomitant]
     Indication: THYROID DISORDER
  5. VITAMIN TAB [Concomitant]
  6. LOPERAMIDE [Concomitant]
  7. LOMOTIL [Concomitant]
  8. ZOLOFT [Concomitant]

REACTIONS (5)
  - DRUG EFFECT DECREASED [None]
  - DRUG INEFFECTIVE [None]
  - GASTRIC CANCER [None]
  - MEDICATION ERROR [None]
  - WEIGHT DECREASED [None]
